FAERS Safety Report 8711204 (Version 3)
Quarter: 2012Q4

REPORT INFORMATION
  Report Type: 
  Country: FR (occurrence: FR)
  Receive Date: 20120807
  Receipt Date: 20121019
  Transmission Date: 20130627
  Serious: Yes (Hospitalization)
  Sender: FDA-Public Use
  Company Number: FR-PFIZER INC-2012189147

PATIENT
  Age: 2 Year
  Sex: Female

DRUGS (9)
  1. TAZOCILLINE [Suspect]
     Indication: BRONCHITIS
     Dosage: UNK
     Dates: start: 20120710, end: 20120711
  2. AUGMENTIN [Suspect]
     Indication: PHARYNGEAL ABSCESS
     Dosage: UNK
     Dates: start: 20120630, end: 20120710
  3. VANCOMYCIN HYDROCHLORIDE [Concomitant]
     Indication: BRONCHITIS
     Dosage: UNK
     Dates: start: 20120712, end: 20120718
  4. AMIKLIN [Concomitant]
     Indication: BRONCHITIS
     Dosage: UNK
     Dates: start: 20120710, end: 20120718
  5. SOLU-MEDROL [Concomitant]
     Dosage: UNK
     Dates: start: 201206
  6. CLAFORAN [Concomitant]
     Dosage: UNK
     Dates: start: 201206
  7. FOSFOCINE [Concomitant]
     Dosage: UNK
     Dates: start: 201206
  8. CLAMOXYL [Concomitant]
     Dosage: UNK
     Route: 048
     Dates: start: 20120710
  9. ZECLAR [Concomitant]
     Dosage: UNK
     Dates: start: 20120710

REACTIONS (3)
  - Hepatomegaly [Recovered/Resolved]
  - Gamma-glutamyltransferase increased [Recovered/Resolved]
  - Blood alkaline phosphatase increased [Recovered/Resolved]
